FAERS Safety Report 10776669 (Version 1)
Quarter: 2015Q1

REPORT INFORMATION
  Report Type: Spontaneous
  Country: US (occurrence: US)
  Receive Date: 20150209
  Receipt Date: 20150209
  Transmission Date: 20150721
  Serious: No
  Sender: FDA-Public Use
  Company Number: US-GLAXOSMITHKLINE-A1081465A

PATIENT

DRUGS (1)
  1. BENLYSTA [Suspect]
     Active Substance: BELIMUMAB
     Indication: SYSTEMIC LUPUS ERYTHEMATOSUS
     Dosage: EVERY 28 DAYS
     Route: 042
     Dates: start: 20140301

REACTIONS (4)
  - Pain in extremity [Unknown]
  - Hypertension [Unknown]
  - Chest pain [Unknown]
  - Muscular weakness [Unknown]
